FAERS Safety Report 7587052-5 (Version None)
Quarter: 2011Q3

REPORT INFORMATION
  Report Type: 
  Country: None (occurrence: None)
  Receive Date: 20110701
  Receipt Date: 20110621
  Transmission Date: 20111222
  Serious: Yes (Other)
  Sender: FDA-Public Use
  Company Number: PHHY2011US39845

PATIENT
  Sex: Male
  Weight: 68.027 kg

DRUGS (1)
  1. EXJADE [Suspect]
     Indication: MYELODYSPLASTIC SYNDROME
     Dosage: 125 MG, BID
     Route: 048
     Dates: start: 20110504

REACTIONS (3)
  - ROAD TRAFFIC ACCIDENT [None]
  - PARAESTHESIA [None]
  - HYPOAESTHESIA [None]
